FAERS Safety Report 24361493 (Version 2)
Quarter: 2024Q4

REPORT INFORMATION
  Report Type: Spontaneous
  Country: US (occurrence: US)
  Receive Date: 20240925
  Receipt Date: 20241115
  Transmission Date: 20250114
  Serious: Yes (Other)
  Sender: CELLTRION
  Company Number: US-CELLTRION INC.-2023US021258

PATIENT

DRUGS (2)
  1. INFLECTRA [Suspect]
     Active Substance: INFLIXIMAB-DYYB
     Indication: Crohn^s disease
     Dosage: 600 MG (INFLIXIMAB D1,15,43 (INITIAL) FB INFLIXIMAB (MAINTENANCE) Q56D) INTRAVENOUSLY PIGGYBACK ONCE
     Route: 042
     Dates: start: 20240619, end: 20240619
  2. INFLECTRA [Suspect]
     Active Substance: INFLIXIMAB-DYYB
     Indication: Rheumatoid arthritis

REACTIONS (3)
  - Rheumatoid arthritis [Unknown]
  - Overdose [Unknown]
  - Intentional product use issue [Unknown]

NARRATIVE: CASE EVENT DATE: 20201005
